FAERS Safety Report 7253016-4 (Version None)
Quarter: 2011Q1

REPORT INFORMATION
  Report Type: 
  Country: None (occurrence: None)
  Receive Date: 20110129
  Receipt Date: 20100317
  Transmission Date: 20110831
  Serious: No
  Sender: FDA-Public Use
  Company Number: US-ABBOTT-10P-163-0634009-00

PATIENT
  Sex: Female
  Weight: 50.394 kg

DRUGS (8)
  1. GENERIC FIORICET [Concomitant]
     Indication: MIGRAINE
  2. HUMIRA [Suspect]
     Dosage: 2ND LOADING DOSE, ONCE
     Route: 058
  3. PHENERGAN [Concomitant]
     Indication: NAUSEA
  4. HUMIRA [Suspect]
     Route: 058
  5. ENDOCORT [Concomitant]
     Indication: PRODUCT USED FOR UNKNOWN INDICATION
     Dosage: WEANING OFF MEDICATION
     Route: 048
  6. XANAX [Concomitant]
     Indication: PRODUCT USED FOR UNKNOWN INDICATION
  7. HYCOSAMINE [Concomitant]
     Indication: PRODUCT USED FOR UNKNOWN INDICATION
  8. HUMIRA [Suspect]
     Indication: CROHN'S DISEASE
     Dosage: ONCE, 1ST LOADING DOSE
     Route: 058
     Dates: start: 20100101, end: 20100101

REACTIONS (6)
  - NASOPHARYNGITIS [None]
  - RASH PUSTULAR [None]
  - IMMUNODEFICIENCY [None]
  - INFLUENZA LIKE ILLNESS [None]
  - ASTHENIA [None]
  - INJECTION SITE PAIN [None]
